FAERS Safety Report 9642511 (Version 1)
Quarter: 2013Q4

REPORT INFORMATION
  Report Type: Spontaneous
  Country: US (occurrence: US)
  Receive Date: 20131024
  Receipt Date: 20131024
  Transmission Date: 20140711
  Serious: No
  Sender: FDA-Public Use
  Company Number: US-BAYER-2013-129224

PATIENT
  Sex: Female
  Weight: 116 kg

DRUGS (2)
  1. BETASERON [Suspect]
     Dosage: 0.25 MG, QOD
     Route: 058
  2. PROVENTIL [Concomitant]
     Dosage: 90 MCG,UNK

REACTIONS (1)
  - Injection site pain [None]
